FAERS Safety Report 6029417-9 (Version None)
Quarter: 2009Q1

REPORT INFORMATION
  Report Type: 
  Country: None (occurrence: None)
  Receive Date: 20090105
  Receipt Date: 20081218
  Transmission Date: 20090719
  Serious: Yes (Other)
  Sender: FDA-Public Use
  Company Number: 2008-188832-NL

PATIENT
  Age: 33 Year
  Sex: Female
  Weight: 63.5 kg

DRUGS (1)
  1. DESOGEN [Suspect]
     Indication: CONTRACEPTION
     Dosage: ORAL
     Route: 048
     Dates: start: 20080918, end: 20081209

REACTIONS (1)
  - COLITIS ISCHAEMIC [None]
